FAERS Safety Report 13703364 (Version 1)
Quarter: 2017Q2

REPORT INFORMATION
  Report Type: Other
  Country: GB (occurrence: GB)
  Receive Date: 20170629
  Receipt Date: 20170629
  Transmission Date: 20170830
  Serious: Yes (Life-Threatening, Other)
  Sender: FDA-Public Use
  Company Number: GB-GE HEALTHCARE LIFE SCIENCES-2017CSU001868

PATIENT

DRUGS (1)
  1. OMNIPAQUE [Suspect]
     Active Substance: IOHEXOL
     Indication: APPENDICITIS
     Dosage: 100 ML, SINGLE
     Route: 042
     Dates: start: 20170614, end: 20170614

REACTIONS (3)
  - Respiratory arrest [Recovered/Resolved]
  - Circulatory collapse [Recovered/Resolved]
  - Anaphylactic reaction [Recovered/Resolved]

NARRATIVE: CASE EVENT DATE: 20170614
